FAERS Safety Report 7602254-7 (Version None)
Quarter: 2011Q3

REPORT INFORMATION
  Report Type: 
  Country: None (occurrence: None)
  Receive Date: 20110711
  Receipt Date: 20110629
  Transmission Date: 20111222
  Serious: Yes (Other)
  Sender: FDA-Public Use
  Company Number: US-RB-028781-11

PATIENT
  Age: 53 Year
  Sex: Male

DRUGS (2)
  1. SUBOXONE [Suspect]
     Route: 060
     Dates: end: 20100101
  2. SUBOXONE [Suspect]
     Indication: DRUG DEPENDENCE
     Route: 060
     Dates: start: 20110101

REACTIONS (4)
  - TOOTH DISORDER [None]
  - THROAT CANCER [None]
  - CONVULSION [None]
  - NERVE INJURY [None]
